FAERS Safety Report 15591255 (Version 3)
Quarter: 2019Q2

REPORT INFORMATION
  Report Type: Spontaneous
  Country: US (occurrence: US)
  Receive Date: 20181106
  Receipt Date: 20190604
  Transmission Date: 20190711
  Serious: Yes (Hospitalization, Other)
  Sender: FDA-Public Use
  Company Number: US-PFIZER INC-2018443333

PATIENT
  Age: 47 Year
  Sex: Female
  Weight: 90.72 kg

DRUGS (10)
  1. LYRICA [Suspect]
     Active Substance: PREGABALIN
     Indication: NEURALGIA
  2. AMLODIPINE [Concomitant]
     Active Substance: AMLODIPINE BESYLATE
     Indication: HYPERTENSION
     Dosage: 5 MG, DAILY
     Dates: start: 2014
  3. WARFARIN [Concomitant]
     Active Substance: WARFARIN
     Dosage: 5 MG, WEEKLY (ONCE A WEEK EXCEPT WEDNESDAY AND FRIDAY TAKES HALF A PILL)
     Dates: start: 2007
  4. TIZANIDINE HCL [Concomitant]
     Active Substance: TIZANIDINE HYDROCHLORIDE
     Indication: MUSCLE RELAXANT THERAPY
  5. LEVETIRACETAM. [Concomitant]
     Active Substance: LEVETIRACETAM
     Indication: SEIZURE
     Dosage: 500 MG, 3X/DAY
     Dates: start: 2007
  6. SERTRALINE [Concomitant]
     Active Substance: SERTRALINE HYDROCHLORIDE
     Indication: DEPRESSION
     Dosage: 100 MG, 1X/DAY
  7. TIZANIDINE HCL [Concomitant]
     Active Substance: TIZANIDINE HYDROCHLORIDE
     Indication: SLEEP DISORDER
     Dosage: UNK
  8. LYRICA [Suspect]
     Active Substance: PREGABALIN
     Indication: MOVEMENT DISORDER
     Dosage: 75 MG, 3X/DAY
     Route: 048
     Dates: start: 20181224
  9. LYRICA [Suspect]
     Active Substance: PREGABALIN
     Indication: PAIN
  10. PRAVASTATIN SODIUM. [Concomitant]
     Active Substance: PRAVASTATIN SODIUM
     Indication: HYPERTENSION
     Dosage: 80 MG, DAILY
     Route: 048
     Dates: start: 2014

REACTIONS (4)
  - Dyspnoea [Unknown]
  - Blindness unilateral [Unknown]
  - Hypertension [Unknown]
  - Vitamin D decreased [Unknown]
